FAERS Safety Report 5118162-X (Version None)
Quarter: 2006Q4

REPORT INFORMATION
  Report Type: 
  Country: None (occurrence: None)
  Receive Date: 20061002
  Receipt Date: 20060919
  Transmission Date: 20070319
  Serious: Yes (Other)
  Sender: FDA-Public Use
  Company Number: PHNU2006DE03169

PATIENT
  Age: 50 Year
  Sex: Female

DRUGS (1)
  1. AREDIA [Suspect]
     Indication: OSTEOPOROSIS
     Dosage: 60 MG, TIW

REACTIONS (3)
  - CONDITION AGGRAVATED [None]
  - OSTEOPOROSIS [None]
  - OSTEOPOROTIC FRACTURE [None]
